FAERS Safety Report 25936076 (Version 2)
Quarter: 2025Q4

REPORT INFORMATION
  Report Type: Spontaneous
  Country: CO (occurrence: CO)
  Receive Date: 20251017
  Receipt Date: 20251024
  Transmission Date: 20260117
  Serious: Yes (Other)
  Sender: NOVO NORDISK
  Company Number: CO-NOVOPROD-1539838

PATIENT
  Age: 18 Year
  Sex: Female

DRUGS (1)
  1. SAXENDA [Suspect]
     Active Substance: LIRAGLUTIDE
     Indication: Obesity
     Dosage: UNK, MG QD
     Route: 058

REACTIONS (2)
  - Skin laxity [Recovered/Resolved]
  - Postoperative wound complication [Recovered/Resolved]

NARRATIVE: CASE EVENT DATE: 20250801
